FAERS Safety Report 9388754 (Version 1)
Quarter: 2013Q3

REPORT INFORMATION
  Report Type: Spontaneous
  Country: CA (occurrence: CA)
  Receive Date: 20130708
  Receipt Date: 20130708
  Transmission Date: 20140515
  Serious: Yes (Disabling)
  Sender: FDA-Public Use
  Company Number: CA-BAYER-2013-080080

PATIENT
  Age: 33 Year
  Sex: Female

DRUGS (2)
  1. CANESTEN [Suspect]
     Dosage: 1 DOSE, QD
     Route: 067
  2. MONISTAT [Concomitant]

REACTIONS (3)
  - Condition aggravated [Unknown]
  - Drug ineffective [Unknown]
  - Fungal infection [Unknown]
